FAERS Safety Report 4351063-3 (Version None)
Quarter: 2004Q2

REPORT INFORMATION
  Report Type: 
  Country: None (occurrence: None)
  Receive Date: 20040427
  Receipt Date: 20040415
  Transmission Date: 20050107
  Serious: Yes (Death)
  Sender: FDA-Public Use
  Company Number: IT-JNJFOC-20040403495

PATIENT
  Sex: 0

DRUGS (1)
  1. INFLIXIMAB (INFLIXIMAB, RECOMBINANT) LYOPHILIZED POWDER [Suspect]
     Indication: GRAFT VERSUS HOST DISEASE
     Dosage: 10 MG/KG, 1 IN 1 WEEK, INTRAVENOUS
     Route: 042

REACTIONS (2)
  - DRUG INEFFECTIVE [None]
  - GRAFT VERSUS HOST DISEASE [None]
